FAERS Safety Report 5581846-3 (Version None)
Quarter: 2008Q1

REPORT INFORMATION
  Report Type: 
  Country: None (occurrence: None)
  Receive Date: 20080104
  Receipt Date: 20071207
  Transmission Date: 20080703
  Serious: No
  Sender: FDA-Public Use
  Company Number: US-BAYER-200712297BCC

PATIENT
  Age: 14 Year
  Sex: Female
  Weight: 54 kg

DRUGS (5)
  1. ALEVE [Suspect]
     Indication: ARTHRALGIA
     Dosage: TOTAL DAILY DOSE: 880 MG  UNIT DOSE: 220 MG
     Route: 048
  2. SINGULAIR [Concomitant]
  3. ZYRTEC [Concomitant]
  4. ALBUTEROL [Concomitant]
  5. FLONASE [Concomitant]

REACTIONS (1)
  - IRRITABILITY [None]
